FAERS Safety Report 18940668 (Version 2)
Quarter: 2021Q1

REPORT INFORMATION
  Report Type: Report from Study
  Country: None (occurrence: BR)
  Receive Date: 20210225
  Receipt Date: 20210226
  Transmission Date: 20210420
  Serious: Yes (Hospitalization, Disabling, Other)
  Sender: FDA-Public Use
  Company Number: BR-ABBVIE-21K-020-3782226-00

PATIENT
  Age: 64 Year
  Sex: Female

DRUGS (2)
  1. HUMIRA [Suspect]
     Active Substance: ADALIMUMAB
     Indication: ANKYLOSING SPONDYLITIS
     Dosage: UNKNOWN
     Route: 058
     Dates: start: 20140819
  2. HUMIRA [Suspect]
     Active Substance: ADALIMUMAB
     Dosage: UNKNOWN
     Route: 058

REACTIONS (12)
  - Memory impairment [Unknown]
  - Bedridden [Unknown]
  - Amnesia [Recovering/Resolving]
  - Device breakage [Recovered/Resolved]
  - COVID-19 [Recovered/Resolved]
  - Cerebrovascular accident [Recovering/Resolving]
  - Confusional state [Not Recovered/Not Resolved]
  - Intentional product misuse [Unknown]
  - Loss of consciousness [Recovering/Resolving]
  - Nervousness [Not Recovered/Not Resolved]
  - Cardiac disorder [Unknown]
  - Stress [Unknown]

NARRATIVE: CASE EVENT DATE: 2020
